FAERS Safety Report 10157698 (Version 2)
Quarter: 2014Q2

REPORT INFORMATION
  Report Type: Spontaneous
  Country: US (occurrence: US)
  Receive Date: 20140507
  Receipt Date: 20140507
  Transmission Date: 20141212
  Serious: No
  Sender: FDA-Public Use
  Company Number: US-JNJFOC-20140500531

PATIENT
  Age: 80 Year
  Sex: Male
  Weight: 113.4 kg

DRUGS (22)
  1. DURAGESIC [Suspect]
     Indication: PAIN
     Route: 062
     Dates: start: 2004
  2. DURAGESIC [Suspect]
     Indication: PAIN
     Dosage: ONE 100 UG/HR PATCH AND ONE 50UG/HR PATCH.
     Route: 062
  3. DURAGESIC [Suspect]
     Indication: PAIN
     Route: 062
  4. DURAGESIC [Suspect]
     Indication: PAIN
     Dosage: TWO (100UG/HR) PATCH AND ONE 50UG/HR PATCH.
     Route: 062
     Dates: start: 20140429
  5. DURAGESIC [Suspect]
     Indication: PAIN
     Route: 062
     Dates: start: 201401
  6. DURAGESIC [Suspect]
     Indication: PAIN
     Dosage: 2 (100UG/HR) PATCH
     Route: 062
     Dates: start: 201404
  7. FENTANYL [Suspect]
     Indication: PAIN
     Route: 062
     Dates: start: 201401
  8. FENTANYL [Suspect]
     Indication: PAIN
     Route: 062
  9. FENTANYL [Suspect]
     Indication: PAIN
     Route: 062
  10. AMITRIPTYLINE [Suspect]
     Indication: NEURALGIA
     Route: 048
  11. NEURONTIN [Concomitant]
     Indication: PAIN
     Dosage: 8 CAPSULES
     Route: 048
  12. HYDROCODONE [Concomitant]
     Indication: PAIN
     Dosage: 5/3.75MG
     Route: 048
  13. GLIMEPIRIDE [Concomitant]
     Indication: DIABETES MELLITUS
     Route: 048
  14. TAMSULOSIN [Concomitant]
     Indication: PRODUCT USED FOR UNKNOWN INDICATION
     Route: 048
  15. METFORMIN [Concomitant]
     Indication: DIABETES MELLITUS
     Route: 048
  16. DOCUSATE SODIUM [Concomitant]
     Indication: CONSTIPATION
     Route: 048
  17. ATORVASTATIN [Concomitant]
     Indication: CARDIAC DISORDER
     Route: 048
  18. ACYCLOVIR [Concomitant]
     Indication: STOMATITIS
     Route: 048
  19. OMEPRAZOLE [Concomitant]
     Indication: PRODUCT USED FOR UNKNOWN INDICATION
     Route: 048
  20. VITAMIN D3 [Concomitant]
     Indication: PRODUCT USED FOR UNKNOWN INDICATION
     Route: 048
  21. LOSARTAN POTASSIUM [Concomitant]
     Indication: PRODUCT USED FOR UNKNOWN INDICATION
     Route: 048
  22. LIDOCAINE PATCHES [Concomitant]
     Indication: PRODUCT USED FOR UNKNOWN INDICATION
     Route: 062

REACTIONS (7)
  - Dementia [Not Recovered/Not Resolved]
  - Abnormal loss of weight [Not Recovered/Not Resolved]
  - Pain [Unknown]
  - Wrong technique in drug usage process [Unknown]
  - Dysarthria [Not Recovered/Not Resolved]
  - Mental impairment [Not Recovered/Not Resolved]
  - Prescribed overdose [Unknown]
